FAERS Safety Report 15585862 (Version 2)
Quarter: 2018Q4

REPORT INFORMATION
  Report Type: Spontaneous
  Country: CA (occurrence: CA)
  Receive Date: 20181105
  Receipt Date: 20181127
  Transmission Date: 20190205
  Serious: Yes (Other)
  Sender: FDA-Public Use
  Company Number: CA-PFIZER INC-2018451537

PATIENT
  Age: 71 Year
  Sex: Female

DRUGS (8)
  1. PANTOLOC [PANTOPRAZOLE] [Concomitant]
     Dosage: UNK
  2. VITAMIN D [COLECALCIFEROL] [Concomitant]
     Dosage: UNK
  3. HYDROXYCHLOROQUINE [Suspect]
     Active Substance: HYDROXYCHLOROQUINE
     Indication: RHEUMATOID ARTHRITIS
     Dosage: 200 MG, UNK
  4. XELJANZ [Concomitant]
     Active Substance: TOFACITINIB CITRATE
     Indication: RHEUMATOID ARTHRITIS
     Dosage: 5 MG, 1X/DAY
     Route: 048
     Dates: start: 20181103
  5. SULFASALAZINE. [Concomitant]
     Active Substance: SULFASALAZINE
     Dosage: 500 MG, UNK
     Route: 048
     Dates: start: 201808
  6. LEDERLE LEUCOVORIN [Concomitant]
     Dosage: 5 MG,  AFTER METHOTREXATE
  7. SULFASALAZINE. [Concomitant]
     Active Substance: SULFASALAZINE
     Indication: RHEUMATOID ARTHRITIS
     Dosage: 1 G, UNK
     Route: 048
  8. METHOTREXATE SODIUM. [Suspect]
     Active Substance: METHOTREXATE SODIUM
     Indication: RHEUMATOID ARTHRITIS
     Dosage: 25 MG, WEEKLY
     Route: 058

REACTIONS (4)
  - Bone erosion [Unknown]
  - Drug ineffective [Unknown]
  - Bone deformity [Unknown]
  - Condition aggravated [Not Recovered/Not Resolved]
